FAERS Safety Report 5905790-4 (Version None)
Quarter: 2008Q4

REPORT INFORMATION
  Report Type: 
  Country: None (occurrence: None)
  Receive Date: 20081002
  Receipt Date: 20080926
  Transmission Date: 20090506
  Serious: Yes (Hospitalization)
  Sender: FDA-Public Use
  Company Number: A0750167A

PATIENT
  Age: 52 Year
  Sex: Female

DRUGS (4)
  1. AVANDIA [Suspect]
     Indication: DIABETES MELLITUS
     Dosage: 4MG TWICE PER DAY
     Route: 048
     Dates: start: 20010101, end: 20030101
  2. REZULIN [Concomitant]
  3. HUMALOG [Concomitant]
  4. AMARYL [Concomitant]

REACTIONS (3)
  - CARDIOMEGALY [None]
  - CEREBROVASCULAR ACCIDENT [None]
  - GASTRIC DISORDER [None]
